FAERS Safety Report 4707497-8 (Version None)
Quarter: 2005Q3

REPORT INFORMATION
  Report Type: 
  Country: None (occurrence: None)
  Receive Date: 20050706
  Receipt Date: 20050704
  Transmission Date: 20060218
  Serious: Yes (Other)
  Sender: FDA-Public Use
  Company Number: DE-GLAXOSMITHKLINE-D0046999A

PATIENT
  Age: 54 Year
  Sex: Female

DRUGS (1)
  1. ELMENDOS [Suspect]
     Dosage: 25MG UNKNOWN
     Route: 048
     Dates: start: 20050101

REACTIONS (3)
  - LEUKOPENIA [None]
  - LOCAL SWELLING [None]
  - RASH [None]
